FAERS Safety Report 4923439-4 (Version None)
Quarter: 2006Q1

REPORT INFORMATION
  Report Type: 
  Country: None (occurrence: None)
  Receive Date: 20060227
  Receipt Date: 20060216
  Transmission Date: 20060701
  Serious: Yes (Hospitalization, Other)
  Sender: FDA-Public Use
  Company Number: FR-JNJFOC-20051003117

PATIENT
  Sex: Female
  Weight: 63.5 kg

DRUGS (4)
  1. RISPERDAL CONSTA [Suspect]
     Route: 030
  2. LAMICTAL [Concomitant]
     Indication: CONVULSION PROPHYLAXIS
  3. DIHYDAN [Concomitant]
     Indication: CONVULSION PROPHYLAXIS
  4. URBANYL [Concomitant]
     Indication: CONVULSION PROPHYLAXIS

REACTIONS (2)
  - FALL [None]
  - RADIUS FRACTURE [None]
